FAERS Safety Report 7270852-9 (Version None)
Quarter: 2011Q1

REPORT INFORMATION
  Report Type: 
  Country: None (occurrence: None)
  Receive Date: 20110128
  Receipt Date: 20110128
  Transmission Date: 20110831
  Serious: No
  Sender: FDA-Public Use
  Company Number: None

PATIENT

DRUGS (2)
  1. RELENZA [Suspect]
     Indication: PROPHYLAXIS
     Dosage: TWO 5MG ROTADISK INHALATION TWICE DAILY PO
     Route: 048
  2. RELENZA [Suspect]
     Indication: INFLUENZA
     Dosage: TWO 5MG ROTADISK INHALATION TWICE DAILY PO
     Route: 048

REACTIONS (2)
  - MEDICATION ERROR [None]
  - DRUG LABEL CONFUSION [None]
